FAERS Safety Report 6942957-0 (Version None)
Quarter: 2010Q3

REPORT INFORMATION
  Report Type: 
  Country: None (occurrence: None)
  Receive Date: 20100826
  Receipt Date: 20100817
  Transmission Date: 20110219
  Serious: Yes (Hospitalization)
  Sender: FDA-Public Use
  Company Number: CA-JNJFOC-20100806346

PATIENT
  Sex: Male
  Weight: 110 kg

DRUGS (3)
  1. REMICADE [Suspect]
     Indication: CROHN'S DISEASE
     Route: 042
  2. COCAINE [Suspect]
     Indication: DRUG ABUSER
  3. HEROIN [Suspect]
     Indication: DRUG ABUSER

REACTIONS (2)
  - DRUG ABUSER [None]
  - SCHIZOPHRENIA [None]
